FAERS Safety Report 9373984 (Version 1)
Quarter: 2013Q2

REPORT INFORMATION
  Report Type: Spontaneous
  Country: US (occurrence: None)
  Receive Date: 20130627
  Receipt Date: 20130627
  Transmission Date: 20140414
  Serious: No
  Sender: FDA-Public Use
  Company Number: None

PATIENT
  Sex: Male
  Weight: 78.47 kg

DRUGS (1)
  1. FENTNYL [Suspect]
     Indication: PAIN
     Dosage: 75MCG 72? TRANSDERMAL
     Route: 062
     Dates: start: 20130301

REACTIONS (1)
  - Product adhesion issue [None]
